FAERS Safety Report 12967106 (Version 1)
Quarter: 2016Q4

REPORT INFORMATION
  Report Type: Spontaneous
  Country: US (occurrence: US)
  Receive Date: 20161122
  Receipt Date: 20161122
  Transmission Date: 20170207
  Serious: Yes (Life-Threatening, Disabling)
  Sender: FDA-Public Use
  Company Number: None

PATIENT
  Age: 70 Year
  Sex: Male
  Weight: 72.58 kg

DRUGS (9)
  1. METOPROLOL TARTRATE. [Concomitant]
     Active Substance: METOPROLOL TARTRATE
  2. ASPIRIN. [Concomitant]
     Active Substance: ASPIRIN
  3. FISH OIL [Concomitant]
     Active Substance: FISH OIL
  4. ATORVASTATIN [Concomitant]
     Active Substance: ATORVASTATIN
  5. EFFIENT [Suspect]
     Active Substance: PRASUGREL HYDROCHLORIDE
     Indication: ANTIPLATELET THERAPY
     Dosage: EFFIENT (PROSUGREL HYDROCHLORIDE) 1 TABLET (QUANITY 30 PER CONTAINER) QD -?PO WITH 1 81MG ASPIRIN - TAKEN FOR 14 MONTHS.
     Route: 048
     Dates: start: 20150724, end: 20160913
  6. EFFIENT [Suspect]
     Active Substance: PRASUGREL HYDROCHLORIDE
     Indication: CORONARY ARTERIAL STENT INSERTION
     Dosage: EFFIENT (PROSUGREL HYDROCHLORIDE) 1 TABLET (QUANITY 30 PER CONTAINER) QD -?PO WITH 1 81MG ASPIRIN - TAKEN FOR 14 MONTHS.
     Route: 048
     Dates: start: 20150724, end: 20160913
  7. SAW PALMETTO [Concomitant]
     Active Substance: SAW PALMETTO
  8. VITAMIN D [Concomitant]
     Active Substance: CHOLECALCIFEROL
  9. MULTIVITAMIN [Concomitant]
     Active Substance: VITAMINS

REACTIONS (4)
  - Sleep disorder [None]
  - Contusion [None]
  - Haemorrhagic diathesis [None]
  - Heart rate irregular [None]

NARRATIVE: CASE EVENT DATE: 20150728
